FAERS Safety Report 19476832 (Version 2)
Quarter: 2021Q3

REPORT INFORMATION
  Report Type: Spontaneous
  Country: US (occurrence: US)
  Receive Date: 20210630
  Receipt Date: 20210810
  Transmission Date: 20211014
  Serious: No
  Sender: FDA-Public Use
  Company Number: US-PFIZER INC-2021412082

PATIENT
  Age: 61 Year
  Sex: Male
  Weight: 116.1 kg

DRUGS (4)
  1. INLYTA [Suspect]
     Active Substance: AXITINIB
     Indication: RENAL CANCER
     Dosage: UNK
  2. IBUPROFEN. [Concomitant]
     Active Substance: IBUPROFEN
     Dosage: 100 MG
  3. LEVOTHYROXINE. [Concomitant]
     Active Substance: LEVOTHYROXINE
     Dosage: 100 UG
  4. INLYTA [Suspect]
     Active Substance: AXITINIB
     Dosage: 5 MG, 2X/DAY (EVERY 12 HOURS)
     Route: 048
     Dates: start: 20210420

REACTIONS (7)
  - Oral pain [Unknown]
  - Platelet count decreased [Unknown]
  - Decreased appetite [Unknown]
  - White blood cell count decreased [Unknown]
  - Fatigue [Unknown]
  - Pain [Unknown]
  - Impaired healing [Unknown]
